FAERS Safety Report 10280395 (Version 1)
Quarter: 2014Q3

REPORT INFORMATION
  Report Type: Spontaneous
  Country: US (occurrence: US)
  Receive Date: 20140707
  Receipt Date: 20140707
  Transmission Date: 20150326
  Serious: Yes (Other)
  Sender: FDA-Public Use
  Company Number: US-PFIZER INC-2014182611

PATIENT
  Age: 63 Year
  Sex: Male
  Weight: 83.9 kg

DRUGS (5)
  1. LYRICA [Suspect]
     Active Substance: PREGABALIN
     Dosage: 900 MG, 1X/DAY
     Route: 048
  2. LYRICA [Suspect]
     Active Substance: PREGABALIN
     Indication: NERVE COMPRESSION
     Dosage: 75 MG, 1X/DAY
     Route: 048
     Dates: start: 2007, end: 2012
  3. LYRICA [Suspect]
     Active Substance: PREGABALIN
     Dosage: 600 MG, 1X/DAY
     Route: 048
     Dates: start: 2012
  4. AMLODIPINE [Concomitant]
     Active Substance: AMLODIPINE BESYLATE
     Indication: HYPERTENSION
     Dosage: UNK
     Dates: start: 201201
  5. IBUPROFEN. [Concomitant]
     Active Substance: IBUPROFEN
     Indication: ARTHRALGIA
     Dosage: UNK, AS NEEDED

REACTIONS (13)
  - Neuropathy peripheral [Unknown]
  - Pain [Unknown]
  - Dizziness [Unknown]
  - Disease progression [Unknown]
  - Syncope [Unknown]
  - Intentional overdose [Unknown]
  - Spinal disorder [Unknown]
  - Weight increased [Unknown]
  - Renal impairment [Unknown]
  - Somnolence [Unknown]
  - Pyrexia [Unknown]
  - Nerve compression [Unknown]
  - Balance disorder [Unknown]

NARRATIVE: CASE EVENT DATE: 2011
